FAERS Safety Report 13209843 (Version 1)
Quarter: 2017Q1

REPORT INFORMATION
  Report Type: Report from Study
  Country: None (occurrence: BR)
  Receive Date: 20170209
  Receipt Date: 20170209
  Transmission Date: 20170428
  Serious: Yes (Hospitalization)
  Sender: FDA-Public Use
  Company Number: BR-ABBVIE-17P-020-1867137-00

PATIENT
  Sex: Female
  Weight: 57 kg

DRUGS (3)
  1. FOLIC ACID (NON-ABBVIE) [Concomitant]
     Indication: ANAEMIA PROPHYLAXIS
     Route: 048
     Dates: start: 2016
  2. HUMIRA [Suspect]
     Active Substance: ADALIMUMAB
     Indication: ANKYLOSING SPONDYLITIS
     Route: 058
     Dates: start: 20151102, end: 20170109
  3. CALCIUM CARBONATE/ CHOLECALCIFEROL (OSSOTRAT) (NON-ABBVIE) [Concomitant]
     Indication: PRODUCT USED FOR UNKNOWN INDICATION
     Route: 048
     Dates: start: 2013

REACTIONS (2)
  - Urinary incontinence [Recovering/Resolving]
  - Cystocele [Recovering/Resolving]

NARRATIVE: CASE EVENT DATE: 2016
